FAERS Safety Report 11374573 (Version 1)
Quarter: 2015Q3

REPORT INFORMATION
  Report Type: Spontaneous
  Country: US (occurrence: None)
  Receive Date: 20150812
  Receipt Date: 20150812
  Transmission Date: 20151125
  Serious: Yes (Hospitalization)
  Sender: FDA-Public Use
  Company Number: None

PATIENT
  Age: 50 Year
  Sex: Female
  Weight: 68.04 kg

DRUGS (1)
  1. INVEGA [Suspect]
     Active Substance: PALIPERIDONE
     Indication: MENTAL DISORDER
     Dosage: INTO THE MUSCLE
     Route: 030
     Dates: start: 20150428, end: 20150518

REACTIONS (5)
  - Muscle spasms [None]
  - Drooling [None]
  - Fine motor skill dysfunction [None]
  - Feeling abnormal [None]
  - Dysphemia [None]

NARRATIVE: CASE EVENT DATE: 20150428
